FAERS Safety Report 4319583-5 (Version None)
Quarter: 2004Q1

REPORT INFORMATION
  Report Type: 
  Country: None (occurrence: None)
  Receive Date: 20040319
  Receipt Date: 20040109
  Transmission Date: 20041129
  Serious: Yes (Hospitalization)
  Sender: FDA-Public Use
  Company Number: JP-ROCHE-355374

PATIENT
  Age: 5 Year
  Sex: Female
  Weight: 21 kg

DRUGS (8)
  1. ROCEPHIN [Suspect]
     Route: 042
     Dates: start: 20031226, end: 20031226
  2. PRIMPERAN INJ [Suspect]
     Indication: VOMITING
     Route: 042
     Dates: start: 20031226, end: 20031226
  3. ZITHROMAX [Suspect]
     Route: 048
     Dates: start: 20031226, end: 20031226
  4. THEO-DUR [Concomitant]
     Route: 048
     Dates: start: 20031226, end: 20031226
  5. TELGIN G [Concomitant]
     Route: 048
     Dates: start: 20031226, end: 20031226
  6. ASVERIN [Concomitant]
     Route: 048
     Dates: start: 20031226
  7. MUCOSAL [Concomitant]
     Route: 048
     Dates: start: 20031226
  8. PROCATEROL HCL [Concomitant]
     Route: 048
     Dates: start: 20031226

REACTIONS (3)
  - ANAPHYLACTOID REACTION [None]
  - ASTHMA [None]
  - VOMITING [None]
